FAERS Safety Report 25223051 (Version 3)
Quarter: 2025Q3

REPORT INFORMATION
  Report Type: Spontaneous
  Country: US (occurrence: US)
  Receive Date: 20250422
  Receipt Date: 20250810
  Transmission Date: 20251020
  Serious: Yes (Life-Threatening, Hospitalization, Other)
  Sender: ALEXION PHARMACEUTICALS
  Company Number: US-ASTRAZENECA-202504USA014300US

PATIENT
  Age: 78 Year
  Sex: Female
  Weight: 61.224 kg

DRUGS (13)
  1. FARXIGA [Suspect]
     Active Substance: DAPAGLIFLOZIN PROPANEDIOL
     Route: 065
  2. CARVEDILOL [Concomitant]
     Active Substance: CARVEDILOL
     Route: 065
  3. COREG [Concomitant]
     Active Substance: CARVEDILOL
     Route: 065
  4. ENTRESTO [Concomitant]
     Active Substance: SACUBITRIL\VALSARTAN
     Route: 065
  5. LASIX [Concomitant]
     Active Substance: FUROSEMIDE
     Route: 065
  6. ASPIRIN [Concomitant]
     Active Substance: ASPIRIN
  7. FAMOTIDINE [Concomitant]
     Active Substance: FAMOTIDINE
  8. FUROSEMIDE [Concomitant]
     Active Substance: FUROSEMIDE
  9. HALOPERIDOL [Concomitant]
     Active Substance: HALOPERIDOL
  10. LISINOPRIL [Concomitant]
     Active Substance: LISINOPRIL
  11. METOPROLOL [Concomitant]
     Active Substance: METOPROLOL
  12. VALACYCLOVIR [Concomitant]
     Active Substance: VALACYCLOVIR HYDROCHLORIDE
  13. ENTRESTO [Concomitant]
     Active Substance: SACUBITRIL\VALSARTAN

REACTIONS (16)
  - Adverse drug reaction [Unknown]
  - Systemic lupus erythematosus [Unknown]
  - Scar [Unknown]
  - Blister [Unknown]
  - Impaired quality of life [Unknown]
  - Rash [Unknown]
  - Furuncle [Unknown]
  - Lesion excision [Unknown]
  - Emotional distress [Unknown]
  - Pain in extremity [Unknown]
  - Skin injury [Unknown]
  - Condition aggravated [Unknown]
  - Hypersensitivity [Unknown]
  - Pain [Unknown]
  - Injury [Unknown]
  - Epidermal necrosis [Unknown]
